FAERS Safety Report 4647394-X (Version None)
Quarter: 2005Q2

REPORT INFORMATION
  Report Type: 
  Country: None (occurrence: None)
  Receive Date: 20050426
  Receipt Date: 20050413
  Transmission Date: 20051028
  Serious: Yes (Hospitalization)
  Sender: FDA-Public Use
  Company Number: DEU-2005-0001373

PATIENT
  Age: 8 Year
  Sex: Male
  Weight: 35 kg

DRUGS (2)
  1. BETASEPTIC MUNDIPHARMA(ISOPROPANOL, ETHANOL, POVIDONE-IODINE)TOPICAL S [Suspect]
     Indication: PREOPERATIVE CARE
     Dosage: TOPICAL
     Route: 061
     Dates: start: 20050324, end: 20050324
  2. ANAESTHETICS [Concomitant]

REACTIONS (2)
  - BURNS SECOND DEGREE [None]
  - CAUSTIC INJURY [None]
